FAERS Safety Report 4539366-0 (Version None)
Quarter: 2004Q4

REPORT INFORMATION
  Report Type: 
  Country: None (occurrence: None)
  Receive Date: 20041222
  Receipt Date: 20041207
  Transmission Date: 20050328
  Serious: Yes (Hospitalization)
  Sender: FDA-Public Use
  Company Number: L04-ESP-08165-01

PATIENT
  Age: 16 Year
  Sex: Female

DRUGS (5)
  1. CARBAMAZEPINE [Suspect]
     Indication: GRAND MAL CONVULSION
     Dosage: 400 MG QD
  2. ISONIAZID [Suspect]
     Indication: TUBERCULOSIS GASTROINTESTINAL
     Dosage: 250 MG QD
     Dates: start: 20020801, end: 20020801
  3. CLOBAZAM [Concomitant]
  4. RIFAMPICIN [Concomitant]
  5. PIRAZINAMIDE [Concomitant]

REACTIONS (11)
  - ASTERIXIS [None]
  - COAGULATION FACTOR V LEVEL DECREASED [None]
  - DEPRESSED LEVEL OF CONSCIOUSNESS [None]
  - DRUG INTERACTION [None]
  - DRUG LEVEL INCREASED [None]
  - ENCEPHALOPATHY [None]
  - HEPATIC FAILURE [None]
  - JAUNDICE [None]
  - PROTHROMBIN TIME PROLONGED [None]
  - SOMNOLENCE [None]
  - TUBERCULOSIS GASTROINTESTINAL [None]
